FAERS Safety Report 4298899-5 (Version None)
Quarter: 2004Q1

REPORT INFORMATION
  Report Type: 
  Country: None (occurrence: None)
  Receive Date: 20040126
  Receipt Date: 20031020
  Transmission Date: 20041129
  Serious: No
  Sender: FDA-Public Use
  Company Number: USA031050314

PATIENT
  Age: 37 Year
  Sex: Female
  Weight: 61 kg

DRUGS (3)
  1. STRATTERA [Suspect]
     Indication: ATTENTION DEFICIT/HYPERACTIVITY DISORDER
     Dosage: 25 MG/EVERY OTHER DAY
     Dates: start: 20030715
  2. EFFEXOR XR [Concomitant]
  3. WELLBUTRIN [Concomitant]

REACTIONS (3)
  - APATHY [None]
  - DISTURBANCE IN ATTENTION [None]
  - FATIGUE [None]
